FAERS Safety Report 17484964 (Version 3)
Quarter: 2020Q2

REPORT INFORMATION
  Report Type: Spontaneous
  Country: US (occurrence: US)
  Receive Date: 20200302
  Receipt Date: 20200526
  Transmission Date: 20200713
  Serious: Yes (Hospitalization, Other)
  Sender: FDA-Public Use
  Company Number: US-SHIRE-US201917911

PATIENT
  Sex: Female

DRUGS (4)
  1. CALCITRIOL. [Suspect]
     Active Substance: CALCITRIOL
     Indication: HYPOCALCAEMIA
     Route: 065
  2. NATPARA (PARATHYROID HORMONE) [Suspect]
     Active Substance: PARATHYROID HORMONE
     Indication: HYPOPARATHYROIDISM
     Dosage: 75 MICROGRAM, 1X/DAY:QD
     Route: 058
     Dates: start: 20170728
  3. CALCIUM [Suspect]
     Active Substance: CALCIUM
     Indication: HYPOCALCAEMIA
     Route: 065
  4. NATPARA (PARATHYROID HORMONE) [Suspect]
     Active Substance: PARATHYROID HORMONE
     Indication: POST PROCEDURAL HYPOPARATHYROIDISM
     Dosage: UNK UNK, 1X/DAY:QD
     Route: 058

REACTIONS (6)
  - Hypocalcaemia [Unknown]
  - Product leakage [Unknown]
  - Product closure issue [Unknown]
  - Blood phosphorus increased [Unknown]
  - Product availability issue [Unknown]
  - Recalled product [Unknown]
